FAERS Safety Report 9483134 (Version 3)
Quarter: 2014Q3

REPORT INFORMATION
  Report Type: Spontaneous
  Country: US (occurrence: US)
  Receive Date: 20130828
  Receipt Date: 20140905
  Transmission Date: 20150326
  Serious: No
  Sender: FDA-Public Use
  Company Number: US-009507513-1308USA012689

PATIENT
  Sex: Female

DRUGS (1)
  1. NUVARING [Suspect]
     Active Substance: ETHINYL ESTRADIOL\ETONOGESTREL
     Dosage: UNK
     Route: 067
     Dates: start: 201001

REACTIONS (6)
  - Pulmonary fibrosis [Unknown]
  - Deep vein thrombosis [Unknown]
  - Haematuria [Unknown]
  - Deep vein thrombosis [Recovered/Resolved]
  - Renal cyst [Unknown]
  - Fallopian tube cyst [Unknown]

NARRATIVE: CASE EVENT DATE: 20110801
